FAERS Safety Report 22212914 (Version 1)
Quarter: 2023Q2

REPORT INFORMATION
  Report Type: Spontaneous
  Country: GB (occurrence: GB)
  Receive Date: 20230414
  Receipt Date: 20230414
  Transmission Date: 20230722
  Serious: Yes (Other)
  Sender: FDA-Public Use
  Company Number: GB-MHRA-MED-202304090840305110-ZGHND

PATIENT
  Age: 46 Year
  Sex: Female

DRUGS (1)
  1. FELODIPINE [Suspect]
     Active Substance: FELODIPINE
     Indication: Hypertension
     Dosage: 2.5 MILLIGRAM, BID (2.5 MILLIGRAM TWICE A DAY)
     Route: 065
     Dates: start: 20220403, end: 20230403

REACTIONS (1)
  - Gingival pain [Recovered/Resolved with Sequelae]
